FAERS Safety Report 12741477 (Version 1)
Quarter: 2016Q3

REPORT INFORMATION
  Report Type: Report from Study
  Country: US (occurrence: US)
  Receive Date: 20160914
  Receipt Date: 20160914
  Transmission Date: 20161109
  Serious: Yes (Other)
  Sender: FDA-Public Use
  Company Number: US-ROCHE-1829838

PATIENT
  Age: 59 Year
  Sex: Female
  Weight: 108.4 kg

DRUGS (2)
  1. TEMSIROLIMUS [Suspect]
     Active Substance: TEMSIROLIMUS
     Indication: CARCINOID TUMOUR
     Dosage: 60 MG TO 80 MG
     Route: 065
  2. BEVACIZUMAB [Suspect]
     Active Substance: BEVACIZUMAB
     Indication: CARCINOID TUMOUR
     Dosage: 1270 MG TO 2380 MG
     Route: 065

REACTIONS (5)
  - Hyponatraemia [Unknown]
  - Blood bilirubin increased [Unknown]
  - Hypophosphataemia [Unknown]
  - Fatigue [Unknown]
  - Hyperglycaemia [Unknown]
